FAERS Safety Report 19755708 (Version 1)
Quarter: 2021Q3

REPORT INFORMATION
  Report Type: Spontaneous
  Country: US (occurrence: US)
  Receive Date: 20210827
  Receipt Date: 20210827
  Transmission Date: 20211014
  Serious: Yes (Other)
  Sender: FDA-Public Use
  Company Number: US-BAYER-2021-198060

PATIENT
  Age: 90 Year
  Sex: Female

DRUGS (1)
  1. ACETYLSALICYLIC ACID [Suspect]
     Active Substance: ASPIRIN

REACTIONS (4)
  - Compartment syndrome [None]
  - Gastric ulcer [None]
  - Labelled drug-drug interaction medication error [None]
  - Haematoma muscle [None]
